FAERS Safety Report 18510203 (Version 7)
Quarter: 2022Q2

REPORT INFORMATION
  Report Type: Spontaneous
  Country: PL (occurrence: PL)
  Receive Date: 20201117
  Receipt Date: 20220415
  Transmission Date: 20220721
  Serious: Yes (Hospitalization, Disabling, Other)
  Sender: FDA-Public Use
  Company Number: PL-PFIZER INC-2020404585

PATIENT
  Age: 32 Year
  Sex: Female

DRUGS (12)
  1. OMEPRAZOLE [Interacting]
     Active Substance: OMEPRAZOLE
     Indication: Dyspepsia
     Dosage: 40 MILLIGRAM, QD
     Route: 065
  2. OMEPRAZOLE [Interacting]
     Active Substance: OMEPRAZOLE
     Dosage: 40 MILLIGRAM
  3. ACETAMINOPHEN [Suspect]
     Active Substance: ACETAMINOPHEN
     Indication: Headache
     Dosage: 4 GRAM, QD (UP TO 4 G PER DAY)
     Route: 065
  4. SERTRALINE [Interacting]
     Active Substance: SERTRALINE HYDROCHLORIDE
     Indication: Depression
     Dosage: 100 MILLIGRAM, QD (100 MG, DAILY)
     Route: 048
  5. SERTRALINE [Interacting]
     Active Substance: SERTRALINE HYDROCHLORIDE
     Dosage: 50 MG, DAILY (50 MG IN THE MORNING)
     Route: 048
  6. SERTRALINE [Interacting]
     Active Substance: SERTRALINE HYDROCHLORIDE
     Dosage: UNK
  7. ITOPRIDE [Interacting]
     Active Substance: ITOPRIDE
     Indication: Dyspepsia
     Dosage: 150 MILLIGRAM, QD (50 MG, 3X/DAY)
     Route: 048
  8. ITOPRIDE [Interacting]
     Active Substance: ITOPRIDE
     Dosage: 100 MILLIGRAM, QD (50 MG, 2X/DAY)
     Route: 048
  9. ITOPRIDE [Interacting]
     Active Substance: ITOPRIDE
     Dosage: 150 MILLIGRAM
     Route: 048
  10. HYDROXYZINE [Interacting]
     Active Substance: HYDROXYZINE HYDROCHLORIDE
     Indication: Depression
     Dosage: 75 MILLIGRAM, QD (25 MG, 3X/DAY)
     Route: 065
  11. HYDROXYZINE [Interacting]
     Active Substance: HYDROXYZINE HYDROCHLORIDE
     Indication: Dyspepsia
  12. HYDROXYZINE [Interacting]
     Active Substance: HYDROXYZINE HYDROCHLORIDE
     Indication: Depressed mood

REACTIONS (13)
  - Dyspepsia [Recovered/Resolved]
  - Asthenia [Unknown]
  - Paraesthesia [Recovered/Resolved]
  - Nausea [Recovered/Resolved]
  - Depression [Unknown]
  - Headache [Recovering/Resolving]
  - Somnolence [Recovering/Resolving]
  - Constipation [Recovered/Resolved]
  - Gastric disorder [Recovering/Resolving]
  - Drug interaction [Recovered/Resolved]
  - Therapeutic product effect incomplete [Unknown]
  - Decreased immune responsiveness [Unknown]
  - Hypersomnia [Unknown]
